FAERS Safety Report 12521569 (Version 1)
Quarter: 2016Q3

REPORT INFORMATION
  Report Type: Spontaneous
  Country: US (occurrence: US)
  Receive Date: 20160701
  Receipt Date: 20160701
  Transmission Date: 20161109
  Serious: Yes (Other)
  Sender: FDA-Public Use
  Company Number: US-GLAXOSMITHKLINE-US2016094044

PATIENT
  Sex: Male

DRUGS (1)
  1. EXCEDRIN EXTRA STRENGTH [Suspect]
     Active Substance: ACETAMINOPHEN\ASPIRIN\CAFFEINE
     Indication: PRODUCT USED FOR UNKNOWN INDICATION
     Dosage: UNK

REACTIONS (4)
  - Walking aid user [Unknown]
  - Ill-defined disorder [Unknown]
  - Spinal operation [Unknown]
  - Inappropriate schedule of drug administration [Unknown]
